FAERS Safety Report 16121833 (Version 1)
Quarter: 2019Q2

REPORT INFORMATION
  Report Type: Spontaneous
  Country: US (occurrence: US)
  Receive Date: 20190326
  Receipt Date: 20190326
  Transmission Date: 20190711
  Serious: Yes (Hospitalization)
  Sender: FDA-Public Use
  Company Number: None

PATIENT
  Sex: Female

DRUGS (9)
  1. BUDESONIDE 0.5MG/2ML [Suspect]
     Active Substance: BUDESONIDE
     Indication: CHRONIC OBSTRUCTIVE PULMONARY DISEASE
     Route: 055
  2. HYDROCHLOROTHIAZIDE. [Concomitant]
     Active Substance: HYDROCHLOROTHIAZIDE
  3. ELIQUIS [Concomitant]
     Active Substance: APIXABAN
  4. LOVASTATIN. [Concomitant]
     Active Substance: LOVASTATIN
  5. LOPRESSOR [Concomitant]
     Active Substance: METOPROLOL TARTRATE
  6. TEMAZEPAM. [Concomitant]
     Active Substance: TEMAZEPAM
  7. DIGOXIN. [Concomitant]
     Active Substance: DIGOXIN
  8. IPRATROPIUM BROMIDE/ALBUTEROL [Concomitant]
     Active Substance: ALBUTEROL SULFATE\IPRATROPIUM BROMIDE
  9. DILTIAZEM CD [Concomitant]
     Active Substance: DILTIAZEM

REACTIONS (1)
  - Cardiac failure congestive [None]
